FAERS Safety Report 6443484-X (Version None)
Quarter: 2009Q4

REPORT INFORMATION
  Report Type: 
  Country: None (occurrence: None)
  Receive Date: 20091117
  Receipt Date: 20091117
  Transmission Date: 20100525
  Serious: Yes (Death, Hospitalization)
  Sender: FDA-Public Use
  Company Number: FR-JNJFOC-20091001960

PATIENT
  Age: 53 Year
  Sex: Male
  Weight: 115 kg

DRUGS (13)
  1. REMICADE [Suspect]
     Dosage: 9TH INFUSION
     Route: 042
     Dates: end: 20081125
  2. REMICADE [Suspect]
     Route: 042
     Dates: end: 20081125
  3. REMICADE [Suspect]
     Dosage: 5TH INFUSION
     Route: 042
     Dates: end: 20081125
  4. REMICADE [Suspect]
     Indication: PSORIATIC ARTHROPATHY
     Route: 042
     Dates: end: 20081125
  5. COUMADIN [Concomitant]
  6. APROVEL [Concomitant]
  7. LASILIX [Concomitant]
  8. PRAVASTATIN [Concomitant]
  9. ICAZ [Concomitant]
  10. METHOTREXATE [Concomitant]
  11. SPECIAFOLDINE [Concomitant]
  12. ARIXTRA [Concomitant]
  13. ISOPTIN [Concomitant]

REACTIONS (8)
  - ACUTE RESPIRATORY DISTRESS SYNDROME [None]
  - BRONCHITIS [None]
  - HAEMATOMA [None]
  - HOT FLUSH [None]
  - HYPOREFLEXIA [None]
  - PAIN IN EXTREMITY [None]
  - PNEUMONIA LEGIONELLA [None]
  - PSORIASIS [None]
